FAERS Safety Report 8982927 (Version 1)
Quarter: 2012Q4

REPORT INFORMATION
  Report Type: 
  Country: US (occurrence: US)
  Receive Date: 20121221
  Receipt Date: 20121221
  Transmission Date: 20130627
  Serious: Yes (Other)
  Sender: FDA-Public Use
  Company Number: US-ABBOTT-12P-163-1023200-00

PATIENT
  Age: 53 Year
  Sex: Female
  Weight: 102.15 kg

DRUGS (4)
  1. VICODIN 5/500 [Suspect]
     Indication: PRODUCT USED FOR UNKNOWN INDICATION
  2. GABAPENTIN [Suspect]
     Indication: NEURALGIA
     Route: 048
  3. ALEVE [Suspect]
     Indication: PRODUCT USED FOR UNKNOWN INDICATION
  4. SYNTHROID [Concomitant]
     Indication: THYROID DISORDER
     Dosage: Daily

REACTIONS (3)
  - Fall [Unknown]
  - Rotator cuff syndrome [Unknown]
  - Drug ineffective [Unknown]
